FAERS Safety Report 12530199 (Version 1)
Quarter: 2016Q3

REPORT INFORMATION
  Report Type: Spontaneous
  Country: US (occurrence: US)
  Receive Date: 20160706
  Receipt Date: 20160706
  Transmission Date: 20161109
  Serious: No
  Sender: FDA-Public Use
  Company Number: US-PFIZER INC-2016328983

PATIENT
  Age: 79 Year
  Sex: Female

DRUGS (8)
  1. IBRANCE [Suspect]
     Active Substance: PALBOCICLIB
     Indication: BREAST CANCER
     Dosage: 125 MG, CYCLIC, (DAILY 21 ON 7 OFF)
     Route: 048
     Dates: start: 20160621
  2. LISINOPRIL. [Concomitant]
     Active Substance: LISINOPRIL
  3. IRON [Concomitant]
     Active Substance: IRON
  4. OMEPRAZOLE. [Concomitant]
     Active Substance: OMEPRAZOLE
  5. ATORVASTATIN [Concomitant]
     Active Substance: ATORVASTATIN
  6. AMIODARONE [Concomitant]
     Active Substance: AMIODARONE
  7. METOPROLOL. [Concomitant]
     Active Substance: METOPROLOL
  8. CENTRUM SILVER /02363801/ [Concomitant]
     Active Substance: MINERALS\VITAMINS

REACTIONS (1)
  - Diarrhoea [Unknown]

NARRATIVE: CASE EVENT DATE: 20160630
